FAERS Safety Report 14590325 (Version 3)
Quarter: 2018Q2

REPORT INFORMATION
  Report Type: Spontaneous
  Country: US (occurrence: US)
  Receive Date: 20180302
  Receipt Date: 20180605
  Transmission Date: 20180711
  Serious: No
  Sender: FDA-Public Use
  Company Number: US-PFIZER INC-2018085463

PATIENT
  Age: 65 Year
  Sex: Female

DRUGS (2)
  1. PEPCID [Concomitant]
     Active Substance: FAMOTIDINE
     Indication: ABDOMINAL PAIN UPPER
     Dosage: UNK
  2. XELJANZ [Suspect]
     Active Substance: TOFACITINIB CITRATE
     Indication: RHEUMATOID ARTHRITIS
     Dosage: 5 MG, 2X/DAY
     Route: 048
     Dates: start: 20180130

REACTIONS (4)
  - Acne [Unknown]
  - Fungal infection [Not Recovered/Not Resolved]
  - Rash generalised [Recovered/Resolved]
  - Headache [Unknown]
